FAERS Safety Report 8823433 (Version 1)
Quarter: 2012Q4

REPORT INFORMATION
  Report Type: 
  Country: US (occurrence: US)
  Receive Date: 20121003
  Receipt Date: 20121003
  Transmission Date: 20130627
  Serious: No
  Sender: FDA-Public Use
  Company Number: US-009507513-1210USA000507

PATIENT
  Age: 56 Year
  Sex: Male

DRUGS (2)
  1. DULERA [Suspect]
     Indication: ALVEOLITIS ALLERGIC
     Dosage: 2 DF, bid
  2. DULERA [Suspect]
     Dosage: 2 DF, qam

REACTIONS (1)
  - Dysuria [Recovering/Resolving]
